FAERS Safety Report 22284687 (Version 1)
Quarter: 2023Q2

REPORT INFORMATION
  Report Type: Spontaneous
  Country: SI (occurrence: SI)
  Receive Date: 20230504
  Receipt Date: 20230504
  Transmission Date: 20230722
  Serious: Yes (Hospitalization)
  Sender: FDA-Public Use
  Company Number: SI-002147023-NVSC2023SI087248

PATIENT
  Sex: Female

DRUGS (33)
  1. PREGABALIN [Suspect]
     Active Substance: PREGABALIN
     Indication: Pain
     Dosage: 100 MILLIGRAM, QD (50 MG, BID)
     Route: 065
  2. PREGABALIN [Suspect]
     Active Substance: PREGABALIN
     Dosage: 75 MG (1X0.5)
     Route: 065
  3. ACETAMINOPHEN [Suspect]
     Active Substance: ACETAMINOPHEN
     Indication: Pain
     Dosage: 500 MG
     Route: 065
     Dates: start: 202205
  4. TIZANIDINE [Suspect]
     Active Substance: TIZANIDINE
     Indication: Pain
     Dosage: 2 MG, QD (1X1 BEFORE SLEEP)
     Route: 065
     Dates: start: 20220823
  5. TIZANIDINE [Suspect]
     Active Substance: TIZANIDINE
     Dosage: 2 MG, PRN (AS NEEDED)
     Route: 065
  6. TIZANIDINE [Suspect]
     Active Substance: TIZANIDINE
     Dosage: 4 MG BID, 2 MG, BID (2X1 BEFORE SLEEP)
     Route: 065
     Dates: start: 20220915
  7. TIZANIDINE [Suspect]
     Active Substance: TIZANIDINE
     Dosage: 2 MG, QD (1X1 IN EVENING BEFORE GOING TO BED)
     Route: 065
  8. ACETAMINOPHEN\TRAMADOL [Concomitant]
     Active Substance: ACETAMINOPHEN\TRAMADOL
     Indication: Pain
     Dosage: UNK MG, PRN (37.5/325) (AS NEEDED)
     Route: 065
     Dates: start: 20220825
  9. TRAMADOL [Concomitant]
     Active Substance: TRAMADOL
     Indication: Pain
     Dosage: UNK (100 MG IN 100 ML SALINE)
     Route: 065
  10. TRAMADOL [Concomitant]
     Active Substance: TRAMADOL
     Dosage: UNK
     Route: 065
     Dates: start: 20220825
  11. TRAMADOL [Concomitant]
     Active Substance: TRAMADOL
     Dosage: 50 MG, TID (UP TO MAX 3X2 PER DAY)
     Route: 065
  12. DULOXETINE HYDROCHLORIDE [Concomitant]
     Active Substance: DULOXETINE HYDROCHLORIDE
     Indication: Pain
     Dosage: 30 MG, QD (AT NOON)
     Route: 065
     Dates: start: 20221006
  13. METOCLOPRAMIDE HYDROCHLORIDE [Concomitant]
     Active Substance: METOCLOPRAMIDE HYDROCHLORIDE
     Indication: Pain
     Dosage: 10 MG, QD (1X1)
     Route: 065
     Dates: start: 202210
  14. METOCLOPRAMIDE HYDROCHLORIDE [Concomitant]
     Active Substance: METOCLOPRAMIDE HYDROCHLORIDE
     Dosage: 1 UNK (AMPOULE)
     Route: 065
     Dates: start: 20220825
  15. DICLOFENAC [Concomitant]
     Active Substance: DICLOFENAC
     Indication: Pain
     Dosage: 1 DOSAGE FORM (5X)
     Route: 030
  16. DICLOFENAC [Concomitant]
     Active Substance: DICLOFENAC
     Dosage: 100 MG, QD
     Route: 065
  17. ORPHENADRINE HYDROCHLORIDE [Concomitant]
     Active Substance: ORPHENADRINE HYDROCHLORIDE
     Indication: Pain
     Dosage: UNK
     Route: 065
  18. TAPENTADOL [Concomitant]
     Active Substance: TAPENTADOL
     Indication: Pain
     Dosage: 100 MILLIGRAM, QD (50 MG, BID (SR)
     Route: 065
  19. NITRAZEPAM [Concomitant]
     Active Substance: NITRAZEPAM
     Indication: Pain
     Dosage: 5 MG, QD
     Route: 065
  20. NAPROXEN [Concomitant]
     Active Substance: NAPROXEN
     Indication: Pain
     Dosage: UNK
     Route: 065
     Dates: start: 202205
  21. NAPROXEN [Concomitant]
     Active Substance: NAPROXEN
     Dosage: 550 MG, PRN (2X1)
     Route: 065
  22. NAPROXEN [Concomitant]
     Active Substance: NAPROXEN
     Dosage: 550 MG, QD (2X1)
     Route: 065
  23. DEXAMETHASONE [Concomitant]
     Active Substance: DEXAMETHASONE
     Indication: Pain
     Dosage: 8 MG
     Route: 065
     Dates: start: 20220926, end: 20221019
  24. DEXAMETHASONE [Concomitant]
     Active Substance: DEXAMETHASONE
     Dosage: UNK MG (8-8-4)
     Route: 030
     Dates: start: 20220823
  25. DEXAMETHASONE [Concomitant]
     Active Substance: DEXAMETHASONE
     Dosage: 8 MG
     Route: 042
     Dates: start: 20220914
  26. DEXAMETHASONE [Concomitant]
     Active Substance: DEXAMETHASONE
     Dosage: 4 MG
     Route: 065
     Dates: start: 20220915
  27. DEXAMETHASONE [Concomitant]
     Active Substance: DEXAMETHASONE
     Dosage: 4 MG, BID (FOR 1 WEEK)
     Route: 065
  28. DEXAMETHASONE [Concomitant]
     Active Substance: DEXAMETHASONE
     Dosage: UNK MG (8-8-4)
     Route: 030
     Dates: start: 20220504
  29. DIAZEPAM [Concomitant]
     Active Substance: DIAZEPAM
     Indication: Pain
     Dosage: 5 MG QD (IN THE EVENINGS)
     Route: 065
     Dates: start: 20220926
  30. PALEXIA [Concomitant]
     Active Substance: TAPENTADOL HYDROCHLORIDE
     Indication: Pain
     Dosage: 100 MG, QD 50 MG, BID (MORNING AND EVENING)
     Route: 065
     Dates: start: 20221006
  31. PANTOPRAZOLE [Concomitant]
     Active Substance: PANTOPRAZOLE
     Indication: Pain
     Dosage: 40 MG
     Route: 042
  32. DULOXETINE [Concomitant]
     Active Substance: DULOXETINE
     Indication: Pain
     Dosage: 60 MG, QD
     Route: 065
  33. DULOXETINE [Concomitant]
     Active Substance: DULOXETINE
     Dosage: 30 MG, QD
     Route: 065

REACTIONS (18)
  - Condition aggravated [Unknown]
  - Burning sensation [Unknown]
  - Middle insomnia [Unknown]
  - Muscle spasms [Unknown]
  - Therapy partial responder [Unknown]
  - Spinal stenosis [Not Recovered/Not Resolved]
  - Electric shock [Unknown]
  - Spinal osteoarthritis [Unknown]
  - Musculoskeletal pain [Unknown]
  - Spinal disorder [Unknown]
  - Mobility decreased [Unknown]
  - Intervertebral disc protrusion [Not Recovered/Not Resolved]
  - Back pain [Not Recovered/Not Resolved]
  - Pain in extremity [Unknown]
  - Gait disturbance [Unknown]
  - Oedema [Recovering/Resolving]
  - Paraesthesia [Unknown]
  - Drug ineffective [Unknown]

NARRATIVE: CASE EVENT DATE: 20220504
